FAERS Safety Report 9393988 (Version 2)
Quarter: 2013Q3

REPORT INFORMATION
  Report Type: Spontaneous
  Country: US (occurrence: US)
  Receive Date: 20130710
  Receipt Date: 20130718
  Transmission Date: 20140515
  Serious: Yes (Other)
  Sender: FDA-Public Use
  Company Number: CHPA2013US010888

PATIENT
  Age: 85 Year
  Sex: Female

DRUGS (1)
  1. VOLTAREN GEL [Suspect]
     Indication: PAIN
     Dosage: UNK, 2-4 TIMES DAILY
     Route: 061
     Dates: start: 2006

REACTIONS (10)
  - Skin cancer [Recovered/Resolved]
  - Carpal tunnel syndrome [Recovered/Resolved]
  - Osteoarthritis [Not Recovered/Not Resolved]
  - Osteoporosis [Not Recovered/Not Resolved]
  - Limb injury [Recovered/Resolved]
  - Skin wound [Recovered/Resolved]
  - Haemorrhage [Recovered/Resolved]
  - Impaired healing [Recovered/Resolved]
  - Off label use [Unknown]
  - Therapeutic response unexpected [Unknown]
